FAERS Safety Report 13124868 (Version 2)
Quarter: 2018Q2

REPORT INFORMATION
  Report Type: Report from Study
  Country: BR (occurrence: BR)
  Receive Date: 20170118
  Receipt Date: 20180620
  Transmission Date: 20180711
  Serious: Yes (Other)
  Sender: FDA-Public Use
  Company Number: PHHY2017BR005387

PATIENT
  Sex: Male
  Weight: 72 kg

DRUGS (1)
  1. GILENYA [Suspect]
     Active Substance: FINGOLIMOD HYDROCHLORIDE
     Indication: MULTIPLE SCLEROSIS
     Dosage: 0.5 MG, QD
     Route: 048
     Dates: end: 201609

REACTIONS (5)
  - Decreased immune responsiveness [Unknown]
  - Weight decreased [Unknown]
  - Device related infection [Unknown]
  - Lower limb fracture [Recovering/Resolving]
  - Patient-device incompatibility [Unknown]
